FAERS Safety Report 7192973-1 (Version None)
Quarter: 2010Q4

REPORT INFORMATION
  Report Type: 
  Country: None (occurrence: None)
  Receive Date: 20101223
  Receipt Date: 20101215
  Transmission Date: 20110411
  Serious: Yes (Other)
  Sender: FDA-Public Use
  Company Number: ZA-JNJFOC-20101205596

PATIENT
  Sex: Female
  Weight: 59 kg

DRUGS (5)
  1. REVELLEX [Suspect]
     Indication: CROHN'S DISEASE
     Dosage: 1ST ONE
     Route: 042
  2. REVELLEX [Suspect]
     Dosage: 3 DOSES AT 0, 2 AND 6 WEEKS (DATES UNSPECIFIED)
     Route: 042
  3. IMURAN [Concomitant]
     Indication: CROHN'S DISEASE
     Route: 048
  4. METICORTEN [Concomitant]
     Indication: CROHN'S DISEASE
     Dosage: TITRATED DOWN
     Route: 048
  5. SOLU-CORTEF [Concomitant]
     Indication: PREMEDICATION

REACTIONS (4)
  - INFECTION [None]
  - MUSCULAR WEAKNESS [None]
  - PAIN IN EXTREMITY [None]
  - PAIN IN JAW [None]
